FAERS Safety Report 14590239 (Version 8)
Quarter: 2020Q1

REPORT INFORMATION
  Report Type: Spontaneous
  Country: US (occurrence: US)
  Receive Date: 20180302
  Receipt Date: 20200110
  Transmission Date: 20200409
  Serious: Yes (Hospitalization, Other)
  Sender: FDA-Public Use
  Company Number: US-PFIZER INC-2018083088

PATIENT
  Age: 67 Year
  Sex: Female

DRUGS (14)
  1. ARTHROTEC [Suspect]
     Active Substance: DICLOFENAC SODIUM\MISOPROSTOL
     Indication: ARTHRITIS
     Dosage: 75 MG, 2X/DAY
     Dates: start: 2010
  2. CALCIUM [Concomitant]
     Active Substance: CALCIUM
     Dates: start: 1990
  3. PEPCID /00305201/ [Concomitant]
     Active Substance: ALUMINUM HYDROXIDE\MAGNESIUM CARBONATE
     Indication: GASTRIC DISORDER
     Dosage: 75, 2X/DAY
     Route: 048
  4. PEPCID /00305201/ [Concomitant]
     Active Substance: ALUMINUM HYDROXIDE\MAGNESIUM CARBONATE
     Dates: start: 2010, end: 2018
  5. HYDROCODONE [Concomitant]
     Active Substance: HYDROCODONE
     Indication: PAIN
     Dosage: 1 UNK, UNK [10/500 ONE PO Q 4 ]
     Route: 048
  6. ARTHROTEC [Suspect]
     Active Substance: DICLOFENAC SODIUM\MISOPROSTOL
     Indication: PAIN
     Dosage: 1 DF, DAILY [STRENGTH: MISOPROSTOL: 200, DICLOFENAC SODIUM: 75]
     Route: 048
  7. ARTHROTEC [Suspect]
     Active Substance: DICLOFENAC SODIUM\MISOPROSTOL
     Indication: VULVOVAGINAL MYCOTIC INFECTION
     Dosage: UNK UNK, DAILY [75/200 ONE PO (ORAL) DAILY]
     Route: 048
  8. DIAZEPAM. [Concomitant]
     Active Substance: DIAZEPAM
     Indication: ANXIETY
     Dosage: UNK UNK, 2X/DAY
     Route: 048
  9. ARTHROTEC [Suspect]
     Active Substance: DICLOFENAC SODIUM\MISOPROSTOL
     Indication: OSTEOPOROSIS
     Dosage: 75 MG, 1X/DAY
     Route: 048
  10. ASPIRIN /00002701/ [Concomitant]
     Active Substance: ASPIRIN
     Indication: BLOOD DISORDER
     Dosage: 81 MG, 1X/DAY
     Route: 048
  11. ARTHROTEC [Suspect]
     Active Substance: DICLOFENAC SODIUM\MISOPROSTOL
     Indication: SCIATICA
  12. VITAMIN E /00110501/ [Concomitant]
     Active Substance: TOCOPHEROL
     Dates: start: 1990
  13. METOPROLOL. [Concomitant]
     Active Substance: METOPROLOL
     Indication: HYPERTENSION
     Dosage: 50 MG, DAILY
     Route: 048
  14. FISH OIL [Concomitant]
     Active Substance: FISH OIL
     Dates: start: 1990

REACTIONS (7)
  - Off label use [Unknown]
  - Vulvovaginal mycotic infection [Unknown]
  - Product use in unapproved indication [Unknown]
  - Impaired healing [Unknown]
  - Infection [Unknown]
  - Product use issue [Unknown]
  - Skin ulcer [Recovered/Resolved with Sequelae]

NARRATIVE: CASE EVENT DATE: 20170123
